FAERS Safety Report 9542036 (Version 3)
Quarter: 2013Q4

REPORT INFORMATION
  Report Type: Spontaneous
  Country: US (occurrence: US)
  Receive Date: 20130923
  Receipt Date: 20131121
  Transmission Date: 20140711
  Serious: Yes (Hospitalization, Other)
  Sender: FDA-Public Use
  Company Number: US-JNJFOC-20130909332

PATIENT
  Age: 45 Year
  Sex: Male
  Weight: 113 kg

DRUGS (2)
  1. REMICADE [Suspect]
     Indication: COLITIS ULCERATIVE
     Route: 042
     Dates: start: 20111101
  2. HUMIRA [Suspect]
     Indication: COLITIS ULCERATIVE
     Route: 065

REACTIONS (7)
  - Histoplasmosis disseminated [Unknown]
  - Adverse event [Unknown]
  - Salmonella test positive [Unknown]
  - Cholelithiasis [Unknown]
  - Neuropathy peripheral [Unknown]
  - Nasal oedema [Recovered/Resolved]
  - Dyspnoea [Recovered/Resolved]
